FAERS Safety Report 6980738-2 (Version None)
Quarter: 2010Q3

REPORT INFORMATION
  Report Type: 
  Country: None (occurrence: None)
  Receive Date: 20100909
  Receipt Date: 20100906
  Transmission Date: 20110219
  Serious: Yes (Other)
  Sender: FDA-Public Use
  Company Number: 018291

PATIENT
  Age: 33 Year
  Sex: Female

DRUGS (2)
  1. KEPPRA [Suspect]
     Indication: EPILEPSY
     Dosage: (3 G INTRAVENOUS (NOT OTHERWISE SPECIFIED))
     Route: 042
     Dates: start: 20100614
  2. DEPAKENE [Suspect]
     Indication: EPILEPSY
     Dosage: (1.6 G INTRAVENOUS (NOT OTHERWISE SPECIFIED))
     Route: 042
     Dates: start: 20100614, end: 20100801

REACTIONS (3)
  - AMMONIA INCREASED [None]
  - INCONTINENCE [None]
  - TRANSAMINASES INCREASED [None]
